FAERS Safety Report 15979286 (Version 1)
Quarter: 2019Q1

REPORT INFORMATION
  Report Type: Spontaneous
  Country: US (occurrence: US)
  Receive Date: 20190216
  Receipt Date: 20190216
  Transmission Date: 20190418
  Serious: Yes (Other)
  Sender: FDA-Public Use
  Company Number: None

PATIENT
  Age: 45 Year
  Sex: Female
  Weight: 69.75 kg

DRUGS (5)
  1. ESTRADIOL. [Concomitant]
     Active Substance: ESTRADIOL
  2. DULOXETINE. [Suspect]
     Active Substance: DULOXETINE
     Indication: DISTURBANCE IN ATTENTION
     Dosage: ?          QUANTITY:1 CAPSULE(S);?
     Route: 048
  3. LISINOPRIL. [Concomitant]
     Active Substance: LISINOPRIL
  4. AMLODIPINE [Concomitant]
     Active Substance: AMLODIPINE BESYLATE
  5. ADULT MULTI VIT GUMMIE [Concomitant]

REACTIONS (5)
  - Hypoaesthesia [None]
  - Vertigo [None]
  - Feeling abnormal [None]
  - Abnormal dreams [None]
  - Road traffic accident [None]

NARRATIVE: CASE EVENT DATE: 20190208
